FAERS Safety Report 25131692 (Version 1)
Quarter: 2025Q1

REPORT INFORMATION
  Report Type: Spontaneous
  Country: ES (occurrence: ES)
  Receive Date: 20250327
  Receipt Date: 20250327
  Transmission Date: 20250409
  Serious: Yes (Other)
  Sender: MERCK SHARP & DOHME LLC
  Company Number: ES-009507513-2263146

PATIENT
  Age: 89 Year
  Sex: Female

DRUGS (6)
  1. TEDIZOLID [Suspect]
     Active Substance: TEDIZOLID
     Indication: Staphylococcal infection
     Route: 048
  2. MEROPENEM [Concomitant]
     Active Substance: MEROPENEM
  3. VENLAFAXINE [Concomitant]
     Active Substance: VENLAFAXINE HYDROCHLORIDE
  4. QUETIAPINE [Concomitant]
     Active Substance: QUETIAPINE
  5. CLONAZEPAM [Concomitant]
     Active Substance: CLONAZEPAM
  6. AMOXICILLIN\CLAVULANIC ACID [Concomitant]
     Active Substance: AMOXICILLIN\CLAVULANIC ACID
     Indication: Pneumonia

REACTIONS (2)
  - Serotonin syndrome [Recovering/Resolving]
  - Off label use [Unknown]
